FAERS Safety Report 9240874 (Version 1)
Quarter: 2013Q2

REPORT INFORMATION
  Report Type: Spontaneous
  Country: US (occurrence: None)
  Receive Date: 20130418
  Receipt Date: 20130418
  Transmission Date: 20140414
  Serious: No
  Sender: FDA-Public Use
  Company Number: None

PATIENT
  Age: 62 Year
  Sex: Male
  Weight: 92.4 kg

DRUGS (1)
  1. INTERFERON 2B [Suspect]
     Dosage: 66 MILLION IU
     Dates: start: 20130107, end: 20130325

REACTIONS (5)
  - Swelling face [None]
  - Pain [None]
  - Cellulitis [None]
  - Blood creatine phosphokinase increased [None]
  - Tooth infection [None]
